FAERS Safety Report 10884498 (Version 1)
Quarter: 2015Q1

REPORT INFORMATION
  Report Type: Spontaneous
  Country: IT (occurrence: None)
  Receive Date: 20150227
  Receipt Date: 20150227
  Transmission Date: 20150721
  Serious: Yes (Other)
  Sender: FDA-Public Use
  Company Number: 2753492

PATIENT
  Age: 73 Year
  Sex: Female
  Weight: 40 kg

DRUGS (4)
  1. OXALIPLATIN. [Suspect]
     Active Substance: OXALIPLATIN
     Indication: RECTAL NEOPLASM
     Dosage: 170 MG MILLIGRAM(S) (CYCLICAL) INTRAVENOUS DRIP
     Route: 041
     Dates: start: 20150205, end: 20150205
  2. AVASTIN [Concomitant]
     Active Substance: BEVACIZUMAB
  3. IRINOTECAN [Concomitant]
     Active Substance: IRINOTECAN
  4. XELODA [Concomitant]
     Active Substance: CAPECITABINE

REACTIONS (2)
  - Malaise [None]
  - Respiratory distress [None]

NARRATIVE: CASE EVENT DATE: 20150205
